FAERS Safety Report 8084145-3 (Version None)
Quarter: 2012Q1

REPORT INFORMATION
  Report Type: 
  Country: None (occurrence: None)
  Receive Date: 20120128
  Receipt Date: 20110211
  Transmission Date: 20120608
  Serious: Yes (Other)
  Sender: FDA-Public Use
  Company Number: US-ABBOTT-11P-163-0704703-00

PATIENT
  Sex: Male
  Weight: 131.66 kg

DRUGS (4)
  1. NORCO [Concomitant]
     Indication: BACK PAIN
  2. TIZANIDINE HCL [Concomitant]
     Indication: NEURALGIA
  3. HUMIRA [Suspect]
     Indication: RHEUMATOID ARTHRITIS
     Dates: start: 20110120
  4. LEVOTHYROXINE SODIUM [Concomitant]
     Indication: HYPOTHYROIDISM

REACTIONS (1)
  - MUSCULOSKELETAL PAIN [None]
